FAERS Safety Report 21444892 (Version 1)
Quarter: 2022Q4

REPORT INFORMATION
  Report Type: Report from Study
  Country: CO (occurrence: CO)
  Receive Date: 20221012
  Receipt Date: 20221012
  Transmission Date: 20230113
  Serious: Yes (Hospitalization)
  Sender: FDA-Public Use
  Company Number: CO-VER-202200061

PATIENT
  Age: 7 Year
  Sex: Female

DRUGS (1)
  1. TRIPTORELIN [Suspect]
     Active Substance: TRIPTORELIN
     Route: 065
     Dates: start: 20210902

REACTIONS (1)
  - Hypertonic bladder [Not Recovered/Not Resolved]
